FAERS Safety Report 12757675 (Version 2)
Quarter: 2016Q3

REPORT INFORMATION
  Report Type: Spontaneous
  Country: US (occurrence: US)
  Receive Date: 20160919
  Receipt Date: 20160929
  Transmission Date: 20161109
  Serious: Yes (Death)
  Sender: FDA-Public Use
  Company Number: US-BAUSCH-BL-2016-022740

PATIENT
  Sex: Male

DRUGS (1)
  1. XIFAXAN [Suspect]
     Active Substance: RIFAXIMIN
     Indication: HEPATIC CIRRHOSIS
     Dosage: TABLESPOON, SOMETIMES 3 A DAY AND SOMETIMES 4 A DAY
     Route: 065
     Dates: start: 20160512

REACTIONS (1)
  - Hepatic cirrhosis [Fatal]
